FAERS Safety Report 8716803 (Version 2)
Quarter: 2012Q4

REPORT INFORMATION
  Report Type: 
  Country: CA (occurrence: CA)
  Receive Date: 20120810
  Receipt Date: 20120830
  Transmission Date: 20130627
  Serious: Yes (Hospitalization)
  Sender: FDA-Public Use
  Company Number: CA-B.I. PHARMACEUTICALS,INC./RIDGEFIELD-2012-CN-01668CN

PATIENT
  Age: 72 Year
  Sex: Male

DRUGS (3)
  1. PRADAX [Suspect]
     Indication: ANTICOAGULANT THERAPY
     Dates: end: 201207
  2. PRADAX [Suspect]
     Indication: ATRIAL FIBRILLATION
  3. MEDICATION NOT FURTHER SPECIFIED [Concomitant]

REACTIONS (1)
  - Embolic stroke [Not Recovered/Not Resolved]
